FAERS Safety Report 9798190 (Version 1)
Quarter: 2014Q1

REPORT INFORMATION
  Report Type: Spontaneous
  Country: US (occurrence: None)
  Receive Date: 20140102
  Receipt Date: 20140102
  Transmission Date: 20141002
  Serious: Yes (Hospitalization)
  Sender: FDA-Public Use
  Company Number: 2100110

PATIENT
  Age: 24 Year
  Sex: Female

DRUGS (6)
  1. (FENTANYL CITRATE) [Suspect]
     Dates: start: 20111102
  2. (PROPOFOL) [Suspect]
     Dates: start: 20111102
  3. ROCURONIUM BROMIDE [Suspect]
     Dates: start: 20111102
  4. SEVOFLURANE [Suspect]
     Dates: start: 20111102
  5. (DEXAMETHASONE) [Concomitant]
  6. (CEFAZOLIN) [Concomitant]

REACTIONS (1)
  - Stress cardiomyopathy [None]
